FAERS Safety Report 10269972 (Version 1)
Quarter: 2014Q2

REPORT INFORMATION
  Report Type: Spontaneous
  Country: US (occurrence: None)
  Receive Date: 20140626
  Receipt Date: 20140626
  Transmission Date: 20141212
  Serious: Yes (Other)
  Sender: FDA-Public Use
  Company Number: None

PATIENT
  Age: 28 Year
  Sex: Female
  Weight: 54.43 kg

DRUGS (2)
  1. SULFAMETHOXAZOLE-TMP DS [Suspect]
     Indication: URINARY TRACT INFECTION
     Route: 048
     Dates: start: 20140429, end: 20140504
  2. FERROUS SULFATE [Concomitant]

REACTIONS (6)
  - Photosensitivity reaction [None]
  - Dehydration [None]
  - Sunburn [None]
  - Skin discolouration [None]
  - Thirst [None]
  - Feeling hot [None]
